FAERS Safety Report 6258048-0 (Version None)
Quarter: 2009Q3

REPORT INFORMATION
  Report Type: 
  Country: None (occurrence: None)
  Receive Date: 20090707
  Receipt Date: 20090629
  Transmission Date: 20100115
  Serious: Yes (Hospitalization)
  Sender: FDA-Public Use
  Company Number: JP-WYE-H09735709

PATIENT
  Sex: Female

DRUGS (10)
  1. ZOSYN [Suspect]
     Indication: CELLULITIS
     Route: 041
     Dates: start: 20090514, end: 20090519
  2. BISOPROLOL FUMARATE [Concomitant]
     Route: 048
     Dates: start: 20070726
  3. ENALAPRIL MALEATE [Concomitant]
     Route: 048
     Dates: start: 20070814
  4. OMEPRAZOLE [Concomitant]
     Route: 048
     Dates: start: 20090510
  5. YOKUKAN-SAN [Concomitant]
     Route: 048
     Dates: start: 20090227
  6. ASPIRIN [Concomitant]
     Route: 048
     Dates: start: 20090227
  7. BROTIZOLAM [Concomitant]
     Route: 048
     Dates: start: 20090308
  8. LASIX [Concomitant]
     Route: 048
     Dates: start: 20090414
  9. SIMVASTATIN [Concomitant]
     Route: 048
     Dates: start: 20061123
  10. BENIDIPINE HYDROCHLORIDE [Concomitant]
     Route: 048
     Dates: start: 20080415

REACTIONS (2)
  - AMYLOIDOSIS [None]
  - DIARRHOEA [None]
